FAERS Safety Report 4461381-6 (Version None)
Quarter: 2004Q3

REPORT INFORMATION
  Report Type: 
  Country: None (occurrence: None)
  Receive Date: 20040928
  Receipt Date: 20040305
  Transmission Date: 20050211
  Serious: Yes (Hospitalization)
  Sender: FDA-Public Use
  Company Number: PHHO2004GB03489

PATIENT
  Age: 40 Year
  Sex: Female
  Weight: 106 kg

DRUGS (4)
  1. TEGASEROD VS PLACEBO [Suspect]
     Indication: IRRITABLE BOWEL SYNDROME
     Dosage: TREATMENT FREE PERIOD
  2. TEGASEROD VS PLACEBO [Suspect]
     Dosage: 6 MG, BID
     Dates: start: 20031118, end: 20031216
  3. MANEVAC [Concomitant]
     Indication: CONSTIPATION
     Dates: start: 19990101, end: 20031006
  4. GLYCERIN SUPPOSITORIES [Concomitant]
     Indication: CONSTIPATION
     Dates: start: 19990101, end: 20031006

REACTIONS (2)
  - CHOLECYSTECTOMY [None]
  - CONCOMITANT DISEASE PROGRESSION [None]
